FAERS Safety Report 21298447 (Version 1)
Quarter: 2022Q3

REPORT INFORMATION
  Report Type: Spontaneous
  Country: US (occurrence: None)
  Receive Date: 20220903
  Receipt Date: 20220903
  Transmission Date: 20221026
  Serious: No
  Sender: FDA-Public Use
  Company Number: None

PATIENT
  Age: 35 Year
  Sex: Female
  Weight: 76.5 kg

DRUGS (5)
  1. ANNOVERA [Suspect]
     Active Substance: ETHINYL ESTRADIOL\SEGESTERONE ACETATE
     Indication: Oral contraception
     Dosage: OTHER QUANTITY : 1 RING;?OTHER FREQUENCY : ANNUAL;?
     Route: 067
     Dates: start: 20220718, end: 20220901
  2. METOPROLOL SUCCINATE [Concomitant]
     Active Substance: METOPROLOL SUCCINATE
  3. VITAMIN B12 [Concomitant]
     Active Substance: CYANOCOBALAMIN
  4. VITAMINS [Concomitant]
     Active Substance: VITAMINS
  5. OMEGA 3 [Concomitant]
     Active Substance: CAPSAICIN

REACTIONS (6)
  - Abdominal pain [None]
  - Vaginal haemorrhage [None]
  - Depression [None]
  - Headache [None]
  - Breast tenderness [None]
  - Product quality issue [None]

NARRATIVE: CASE EVENT DATE: 20220817
